FAERS Safety Report 17391698 (Version 1)
Quarter: 2020Q1

REPORT INFORMATION
  Report Type: Report from Study
  Country: US (occurrence: US)
  Receive Date: 20200207
  Receipt Date: 20200207
  Transmission Date: 20200409
  Serious: Yes (Other)
  Sender: FDA-Public Use
  Company Number: US-EMD SERONO-9144363

PATIENT
  Age: 33 Year
  Sex: Male

DRUGS (1)
  1. REBIF [Suspect]
     Active Substance: INTERFERON BETA-1A
     Indication: MULTIPLE SCLEROSIS
     Route: 058
     Dates: start: 2015

REACTIONS (6)
  - Product distribution issue [Unknown]
  - Pancreatitis [Unknown]
  - Fatigue [Unknown]
  - Headache [Unknown]
  - Treatment noncompliance [Unknown]
  - Gastritis [Unknown]

NARRATIVE: CASE EVENT DATE: 201911
